FAERS Safety Report 5817134-7 (Version None)
Quarter: 2008Q3

REPORT INFORMATION
  Report Type: 
  Country: None (occurrence: None)
  Receive Date: 20080722
  Receipt Date: 20080710
  Transmission Date: 20090109
  Serious: Yes (Death)
  Sender: FDA-Public Use
  Company Number: AT-EISAI MEDIAL RESEARCH-E7273-00006-SPO-AT

PATIENT
  Sex: Female

DRUGS (2)
  1. TARGRETIN [Suspect]
     Indication: MYCOSIS FUNGOIDES
     Dosage: 250-300 MG/M2
     Route: 048
     Dates: start: 20070926
  2. LEVOTHYROXINE SODIUM [Concomitant]
     Dosage: 37.5 TO 50 MCG
     Dates: start: 20071127, end: 20080107

REACTIONS (12)
  - BLOOD CHOLESTEROL ABNORMAL [None]
  - BLOOD TRIGLYCERIDES ABNORMAL [None]
  - DEATH [None]
  - DRY SKIN [None]
  - FATIGUE [None]
  - HAEMOGLOBIN ABNORMAL [None]
  - HEADACHE [None]
  - INFECTION [None]
  - MYALGIA [None]
  - NAUSEA [None]
  - PRURITUS [None]
  - PYREXIA [None]
